FAERS Safety Report 4630188-9 (Version None)
Quarter: 2005Q2

REPORT INFORMATION
  Report Type: 
  Country: None (occurrence: None)
  Receive Date: 20050408
  Receipt Date: 20050325
  Transmission Date: 20051028
  Serious: Yes (Death)
  Sender: FDA-Public Use
  Company Number: JP-JNJFOC-20050306980

PATIENT
  Sex: Male
  Weight: 52 kg

DRUGS (6)
  1. REMICADE [Suspect]
     Route: 042
  2. REMICADE [Suspect]
     Indication: CROHN'S DISEASE
     Route: 042
  3. ENTERAL NUTRITION [Concomitant]
  4. PREDONINE [Concomitant]
     Indication: CROHN'S DISEASE
     Route: 049
  5. IMRAN [Concomitant]
     Indication: CROHN'S DISEASE
     Route: 049
  6. PENTASA [Concomitant]
     Indication: CROHN'S DISEASE
     Route: 049

REACTIONS (2)
  - NAUSEA [None]
  - RECTAL CANCER [None]
